FAERS Safety Report 6701064-2 (Version None)
Quarter: 2010Q2

REPORT INFORMATION
  Report Type: 
  Country: None (occurrence: None)
  Receive Date: 20100428
  Receipt Date: 20100414
  Transmission Date: 20101027
  Serious: Yes (Other)
  Sender: FDA-Public Use
  Company Number: US-ELI_LILLY_AND_COMPANY-US201004004218

PATIENT
  Age: 45 Year
  Sex: Male

DRUGS (2)
  1. EFFIENT [Suspect]
  2. REOPRO [Concomitant]

REACTIONS (1)
  - DEVICE OCCLUSION [None]
